FAERS Safety Report 7129852-1 (Version None)
Quarter: 2010Q4

REPORT INFORMATION
  Report Type: 
  Country: None (occurrence: None)
  Receive Date: 20101130
  Receipt Date: 20100923
  Transmission Date: 20110411
  Serious: Yes (Other)
  Sender: FDA-Public Use
  Company Number: US-AMGEN-QUU435001

PATIENT

DRUGS (8)
  1. NPLATE [Suspect]
     Indication: IDIOPATHIC THROMBOCYTOPENIC PURPURA
     Dosage: 130 A?G, UNK
     Route: 058
     Dates: start: 20100519, end: 20100614
  2. CORTICOSTEROID NOS [Concomitant]
     Dosage: UNK UNK, UNK
     Dates: start: 20100429
  3. GABAPENTIN [Concomitant]
     Dosage: 100 MG, QD
     Route: 048
     Dates: start: 20100604
  4. LANSOPRAZOLE [Concomitant]
     Dosage: 30 MG, QD
     Route: 048
     Dates: start: 20100604
  5. POTASSIUM CHLORIDE [Concomitant]
     Dosage: 8 MEQ, BID
     Route: 048
     Dates: start: 20100604
  6. PREDNISONE [Concomitant]
     Dosage: 20 MG, BID
     Route: 048
     Dates: start: 20100427
  7. CABERGOLINE [Concomitant]
     Dosage: .5 MG, 3 TIMES/WK
     Route: 048
     Dates: start: 20100427
  8. RED BLOOD CELLS [Concomitant]
     Dosage: UNK UNK, UNK
     Dates: start: 20100427

REACTIONS (1)
  - DRUG INEFFECTIVE [None]
